FAERS Safety Report 11178376 (Version 1)
Quarter: 2015Q2

REPORT INFORMATION
  Report Type: Spontaneous
  Country: US (occurrence: None)
  Receive Date: 20150515
  Receipt Date: 20150515
  Transmission Date: 20150821
  Serious: Yes (Other)
  Sender: FDA-Public Use
  Company Number: 2015005865

PATIENT

DRUGS (1)
  1. CIMZIA [Suspect]
     Active Substance: CERTOLIZUMAB PEGOL
     Indication: RHEUMATOID ARTHRITIS
     Dosage: 200 MG, EV 2 WEEKS (QOW) (2/PKG), SUBCUTANEOUS
     Route: 058
     Dates: start: 20140428

REACTIONS (4)
  - Peripheral swelling [None]
  - Tooth abscess [None]
  - Pyrexia [None]
  - Blister [None]

NARRATIVE: CASE EVENT DATE: 201404
